FAERS Safety Report 4535992-3 (Version None)
Quarter: 2004Q4

REPORT INFORMATION
  Report Type: 
  Country: None (occurrence: None)
  Receive Date: 20041220
  Receipt Date: 20041206
  Transmission Date: 20050328
  Serious: Yes (Hospitalization)
  Sender: FDA-Public Use
  Company Number: 25756(0)

PATIENT
  Age: 70 Year
  Sex: Male
  Weight: 80.7 kg

DRUGS (9)
  1. ALDARA [Suspect]
     Indication: BASAL CELL CARCINOMA
     Dosage: (0.1 SACHET, 1 IN 1 DAY(S), TOPICAL
     Route: 061
     Dates: start: 20040120, end: 20040727
  2. VICODIN [Concomitant]
  3. IBUPROFEN [Concomitant]
  4. KLONOPIN [Concomitant]
  5. ZOCOR [Concomitant]
  6. GLUCOSAMINE CHONDROITIN [Concomitant]
  7. COLACE [Concomitant]
  8. ASPIRIN [Concomitant]
  9. MULTI-VITAMIN [Concomitant]

REACTIONS (1)
  - PROSTATE CANCER [None]
